FAERS Safety Report 20635509 (Version 1)
Quarter: 2022Q1

REPORT INFORMATION
  Report Type: Spontaneous
  Country: CN (occurrence: CN)
  Receive Date: 20220325
  Receipt Date: 20220325
  Transmission Date: 20220423
  Serious: Yes (Death, Life-Threatening, Hospitalization, Other)
  Sender: FDA-Public Use
  Company Number: CN-BRISTOL-MYERS SQUIBB COMPANY-2022-010612

PATIENT
  Age: 37 Year
  Sex: Male
  Weight: 72 kg

DRUGS (5)
  1. OPDIVO [Suspect]
     Active Substance: NIVOLUMAB
     Indication: Gastric cancer
     Dosage: DOSE : 300MG;     FREQ : ONCE EVERY THREE WEEKS
     Route: 041
     Dates: start: 20210827, end: 20220211
  2. NIVOLUMAB\RELATLIMAB-RMBW [Suspect]
     Active Substance: NIVOLUMAB\RELATLIMAB-RMBW
     Route: 065
  3. Paclitaxel albumin-bound [Concomitant]
     Indication: Gastric cancer
  4. APATINIB [Concomitant]
     Active Substance: APATINIB
     Indication: Gastric cancer
  5. VALSARTAN AND HYDROCHLOROTHIAZIDE [Concomitant]
     Active Substance: HYDROCHLOROTHIAZIDE\VALSARTAN
     Dates: start: 20220211, end: 20220211

REACTIONS (4)
  - Immune-mediated myocarditis [Fatal]
  - Thrombocytopenia [Fatal]
  - Intentional product use issue [Unknown]
  - Asthma [Unknown]

NARRATIVE: CASE EVENT DATE: 20220311
